FAERS Safety Report 6406633-5 (Version None)
Quarter: 2009Q4

REPORT INFORMATION
  Report Type: 
  Country: None (occurrence: None)
  Receive Date: 20091014
  Receipt Date: 20091001
  Transmission Date: 20100525
  Serious: Yes (Hospitalization)
  Sender: FDA-Public Use
  Company Number: 2009AL006422

PATIENT
  Age: 61 Year
  Sex: Male

DRUGS (4)
  1. IBUPROFEN TABLETS [Suspect]
     Dosage: 400 MG;TID;PO
     Route: 048
     Dates: end: 20090903
  2. PROPRANOLOL [Concomitant]
  3. QUININE [Concomitant]
  4. CO-CODAMOL [Concomitant]

REACTIONS (4)
  - DUODENAL ULCER [None]
  - HAEMATEMESIS [None]
  - MELAENA [None]
  - VARICES OESOPHAGEAL [None]
